FAERS Safety Report 24791794 (Version 1)
Quarter: 2024Q4

REPORT INFORMATION
  Report Type: Spontaneous
  Country: US (occurrence: US)
  Receive Date: 20241231
  Receipt Date: 20241231
  Transmission Date: 20250114
  Serious: Yes (Other)
  Sender: CHATTEM
  Company Number: US-OPELLA-2024OHG041637

PATIENT
  Sex: Male

DRUGS (1)
  1. DULCOLAX SOFT CHEWS MIXED BERRY [Suspect]
     Active Substance: MAGNESIUM HYDROXIDE
     Indication: Constipation
     Dosage: STRENGTH: 1200MG
     Dates: start: 202412

REACTIONS (5)
  - Blindness [Recovered/Resolved]
  - Chills [Recovered/Resolved]
  - Wrong technique in product usage process [Unknown]
  - Product label issue [Unknown]
  - Therapeutic product effect delayed [Unknown]

NARRATIVE: CASE EVENT DATE: 20241201
